FAERS Safety Report 10592840 (Version 2)
Quarter: 2014Q4

REPORT INFORMATION
  Report Type: Spontaneous
  Country: US (occurrence: US)
  Receive Date: 20141119
  Receipt Date: 20141119
  Transmission Date: 20150529
  Serious: Yes (Hospitalization, Disabling, Other)
  Sender: FDA-Public Use
  Company Number: US-PFIZER INC-2014303839

PATIENT
  Age: 52 Year
  Sex: Female
  Weight: 62 kg

DRUGS (7)
  1. CELEXA [Concomitant]
     Active Substance: CITALOPRAM HYDROBROMIDE
     Dosage: 40 MG, DAILY
  2. XANAX [Concomitant]
     Active Substance: ALPRAZOLAM
     Indication: ANXIETY
     Dosage: 1 MG, 3X/DAY AS NEEDED
  3. TEMAZEPAM. [Concomitant]
     Active Substance: TEMAZEPAM
     Dosage: 30 MG, 1X/DAY AT NIGHT
  4. LYRICA [Suspect]
     Active Substance: PREGABALIN
     Indication: FIBROMYALGIA
     Dosage: 75 MG, 2X/DAY
     Dates: end: 20140902
  5. ZYRTEC [Concomitant]
     Active Substance: CETIRIZINE HYDROCHLORIDE
     Indication: HYPERSENSITIVITY
     Dosage: OTC DOSAGE, SHE THOUGHT THE DOSAGE WAS 20
  6. ESTRADIOL. [Concomitant]
     Active Substance: ESTRADIOL
     Dosage: 2 MG, 1X/DAY
  7. LEVOTHYROXINE [Concomitant]
     Active Substance: LEVOTHYROXINE
     Indication: HYPOTHYROIDISM
     Dosage: 75 MG, 1X/DAY

REACTIONS (13)
  - Coma [Unknown]
  - Influenza like illness [Unknown]
  - Peroneal nerve palsy [Unknown]
  - Rhabdomyolysis [Unknown]
  - Peripheral swelling [Unknown]
  - Sciatic nerve injury [Unknown]
  - Fall [Not Recovered/Not Resolved]
  - Nerve injury [Not Recovered/Not Resolved]
  - Acute kidney injury [Unknown]
  - Compartment syndrome [Unknown]
  - Joint injury [Unknown]
  - Loss of consciousness [Unknown]
  - Monoplegia [Unknown]

NARRATIVE: CASE EVENT DATE: 201409
